FAERS Safety Report 19900343 (Version 2)
Quarter: 2022Q1

REPORT INFORMATION
  Report Type: Spontaneous
  Country: CA (occurrence: CA)
  Receive Date: 20210930
  Receipt Date: 20220304
  Transmission Date: 20220423
  Serious: Yes (Other)
  Sender: FDA-Public Use
  Company Number: CA-SA-2021SA318503

PATIENT
  Age: 37 Year
  Sex: Female

DRUGS (13)
  1. TRIAMCINOLONE ACETONIDE [Suspect]
     Active Substance: TRIAMCINOLONE ACETONIDE
     Indication: Autoimmune retinopathy
     Dosage: 40 MG (SUB-TENONS TRIAMCINOLONE ADMINISTERED BILATERALLY
     Route: 065
     Dates: start: 201404
  2. BORTEZOMIB [Suspect]
     Active Substance: BORTEZOMIB
     Indication: Autoimmune retinopathy
     Dosage: 1.5 MG/M2, (ALONG WITH DEXAMETHASONE)
     Route: 058
     Dates: start: 201701
  3. DEXAMETHASONE [Suspect]
     Active Substance: DEXAMETHASONE
     Indication: Autoimmune retinopathy
     Dosage: 8 MG, (ON DAYS 1,8 AND 15 OUT OF 28-DAY CYCLE (A TOTAL OF 6 CYCLES))
     Route: 048
  4. METHOTREXATE [Suspect]
     Active Substance: METHOTREXATE
     Indication: Autoimmune retinopathy
     Dosage: 25 MG, QW, (UNKNOWN INITIAL DOSE THAT WAS INCREASED TO 25MG)
     Route: 058
  5. METHOTREXATE [Suspect]
     Active Substance: METHOTREXATE
     Dosage: UNK
     Route: 058
  6. RITUXIMAB [Suspect]
     Active Substance: RITUXIMAB
     Indication: Autoimmune retinopathy
     Dosage: 1000 MG, ON DAYS 1 AND 15)
     Route: 042
     Dates: start: 201701
  7. RITUXIMAB [Suspect]
     Active Substance: RITUXIMAB
     Dosage: 1 G, (TWO DOSES SEPARATED BY 2 WEEKS)
     Route: 042
     Dates: start: 2014
  8. AZATHIOPRINE [Suspect]
     Active Substance: AZATHIOPRINE
     Indication: Autoimmune retinopathy
     Dosage: 150 MG, QD (150 MILLIGRAM DAILY; UNKNOWN INITIAL DOSE, THAT WAS INCREASED TO 150MG/DAY)
     Route: 048
     Dates: start: 2014
  9. AZATHIOPRINE [Suspect]
     Active Substance: AZATHIOPRINE
     Dosage: UNK
     Route: 048
  10. LEUCOVORIN [Suspect]
     Active Substance: LEUCOVORIN
     Indication: Autoimmune retinopathy
     Dosage: 5 MG, QD
  11. ONDANSETRON [Concomitant]
     Active Substance: ONDANSETRON
     Indication: Antiemetic supportive care
     Dosage: UNKNOWN
  12. VALACYCLOVIR [Concomitant]
     Active Substance: VALACYCLOVIR HYDROCHLORIDE
     Indication: Varicella zoster virus infection
     Dosage: UNKNOWN
  13. VALACYCLOVIR [Concomitant]
     Active Substance: VALACYCLOVIR HYDROCHLORIDE
     Indication: Prophylaxis

REACTIONS (6)
  - Constipation [Unknown]
  - Epigastric discomfort [Unknown]
  - Fatigue [Unknown]
  - Injection site inflammation [Unknown]
  - Neuropathy peripheral [Unknown]
  - Therapy non-responder [Unknown]
